FAERS Safety Report 17770605 (Version 1)
Quarter: 2020Q2

REPORT INFORMATION
  Report Type: Spontaneous
  Country: US (occurrence: US)
  Receive Date: 20200512
  Receipt Date: 20200512
  Transmission Date: 20200714
  Serious: Yes (Life-Threatening, Hospitalization, Disabling, Congenital Anomaly, Other)
  Sender: FDA-Public Use
  Company Number: None

PATIENT
  Age: 0 Day
  Sex: Male
  Weight: 2.27 kg

DRUGS (1)
  1. ATENOLOL. [Suspect]
     Active Substance: ATENOLOL
     Dates: start: 20010531, end: 20011130

REACTIONS (11)
  - Hypoglycaemia [None]
  - Hypotonia [None]
  - Cerebral infarction [None]
  - Visual impairment [None]
  - Intelligence test abnormal [None]
  - Maternal drugs affecting foetus [None]
  - Perinatal stroke [None]
  - Exposure via breast milk [None]
  - Seizure [None]
  - Ill-defined disorder [None]
  - Craniocerebral injury [None]

NARRATIVE: CASE EVENT DATE: 20011105
